FAERS Safety Report 26016127 (Version 1)
Quarter: 2025Q4

REPORT INFORMATION
  Report Type: Spontaneous
  Country: US (occurrence: US)
  Receive Date: 20251110
  Receipt Date: 20251110
  Transmission Date: 20260118
  Serious: No
  Sender: ZYDUS PHARM
  Company Number: US-CADILA HEALTHCARE LIMITED-US-ZYDUS-130219

PATIENT

DRUGS (5)
  1. LOSARTAN POTASSIUM [Suspect]
     Active Substance: LOSARTAN POTASSIUM
     Indication: Product used for unknown indication
     Dosage: 25 MILLIGRAM
     Route: 048
  2. BIO DULOXETINE [Concomitant]
     Indication: Fibromyalgia
     Dosage: 30 MILLIGRAM, QD
     Route: 048
  3. BIO DULOXETINE [Concomitant]
     Indication: Neuralgia
  4. TRAMADOL [Concomitant]
     Active Substance: TRAMADOL
     Indication: Neuralgia
     Dosage: 50 MILLIGRAM, BID
     Route: 048
  5. TRAMADOL [Concomitant]
     Active Substance: TRAMADOL
     Indication: Osteoarthritis

REACTIONS (1)
  - Abdominal pain upper [Not Recovered/Not Resolved]
